FAERS Safety Report 12084643 (Version 1)
Quarter: 2016Q1

REPORT INFORMATION
  Report Type: Spontaneous
  Country: JP (occurrence: JP)
  Receive Date: 20160217
  Receipt Date: 20160217
  Transmission Date: 20160526
  Serious: Yes (Other)
  Sender: FDA-Public Use
  Company Number: JP-TEVA-2016-JP-000059J

PATIENT
  Age: 12 Year
  Sex: Female
  Weight: 50 kg

DRUGS (2)
  1. SEISHOKU [Concomitant]
     Active Substance: SODIUM CHLORIDE
     Dosage: 100 ML DAILY;
     Route: 042
     Dates: start: 20160105, end: 20160107
  2. ACICLOVIR ACTIOS FOR I.V. INFUSION 250MG [Suspect]
     Active Substance: ACYCLOVIR
     Indication: MENINGITIS VIRAL
     Dosage: 3000 MILLIGRAM DAILY;
     Route: 042
     Dates: start: 20160105, end: 20160107

REACTIONS (2)
  - Renal impairment [Recovered/Resolved]
  - Phlebitis [Recovered/Resolved]

NARRATIVE: CASE EVENT DATE: 20160106
